FAERS Safety Report 5523119-0 (Version None)
Quarter: 2007Q4

REPORT INFORMATION
  Report Type: 
  Country: None (occurrence: None)
  Receive Date: 20071121
  Receipt Date: 20071114
  Transmission Date: 20080405
  Serious: Yes (Other)
  Sender: FDA-Public Use
  Company Number: US-ASTRAZENECA-2007UW26498

PATIENT
  Age: 82 Year
  Sex: Male

DRUGS (6)
  1. CRESTOR [Suspect]
     Route: 048
  2. ALBUTEROL [Concomitant]
  3. AMARYL [Concomitant]
  4. TUSSIONEX [Concomitant]
  5. ASPIRIN [Concomitant]
  6. ADVAIR DISKUS 100/50 [Concomitant]
     Dosage: 250/150

REACTIONS (1)
  - CRYPTOGENIC ORGANISING PNEUMONIA [None]
